FAERS Safety Report 18928917 (Version 1)
Quarter: 2021Q1

REPORT INFORMATION
  Report Type: Spontaneous
  Country: DE (occurrence: DE)
  Receive Date: 20210223
  Receipt Date: 20210223
  Transmission Date: 20210420
  Serious: Yes (Other)
  Sender: FDA-Public Use
  Company Number: DE-NOVOPROD-787607

PATIENT
  Age: 41 Year
  Sex: Male
  Weight: 155.7 kg

DRUGS (9)
  1. OZEMPIC [Suspect]
     Active Substance: SEMAGLUTIDE
     Indication: OBESITY
  2. OZEMPIC [Interacting]
     Active Substance: SEMAGLUTIDE
     Indication: TYPE 2 DIABETES MELLITUS
     Dosage: 0.5 MG, QW
     Route: 058
     Dates: start: 202009, end: 20201125
  3. CEFUROXIM [CEFUROXIME SODIUM] [Interacting]
     Active Substance: CEFUROXIME SODIUM
     Indication: TONSILLITIS
     Dosage: 500 MG 12 HR (2X1)
     Route: 048
     Dates: start: 20201022
  4. OZEMPIC [Interacting]
     Active Substance: SEMAGLUTIDE
     Indication: HYPERTENSION
  5. CAMLOSTAR [Concomitant]
     Indication: HYPERTENSION
     Dosage: 2 DF, QD 8/5 MG
     Route: 065
  6. CEFUROXIM [CEFUROXIME SODIUM] [Interacting]
     Active Substance: CEFUROXIME SODIUM
     Indication: PNEUMONIA
  7. METFORMIN [Concomitant]
     Active Substance: METFORMIN HYDROCHLORIDE
     Dosage: 1000 MG (12 HR, 2X1)
     Route: 048
     Dates: start: 2018
  8. ELONTRIL [Concomitant]
     Active Substance: BUPROPION HYDROCHLORIDE
     Indication: HYPERTENSION
     Dosage: 300 MG, QD
     Route: 065
  9. TORASEMIDE [Concomitant]
     Active Substance: TORSEMIDE
     Indication: HYPERTENSION
     Dosage: UNK
     Route: 065

REACTIONS (7)
  - Drug eruption [Recovered/Resolved]
  - Oedema peripheral [Recovered/Resolved]
  - Drug interaction [Unknown]
  - Weight increased [Recovered/Resolved]
  - Dyspnoea [Recovered/Resolved]
  - Food craving [Recovered/Resolved]
  - Performance status decreased [Recovered/Resolved]

NARRATIVE: CASE EVENT DATE: 202009
